FAERS Safety Report 4570215-0 (Version None)
Quarter: 2005Q1

REPORT INFORMATION
  Report Type: 
  Country: None (occurrence: None)
  Receive Date: 20050202
  Receipt Date: 20050120
  Transmission Date: 20050727
  Serious: Yes (Death, Hospitalization)
  Sender: FDA-Public Use
  Company Number: 2005006440

PATIENT
  Age: 47 Year
  Sex: Male

DRUGS (3)
  1. VIAGRA [Suspect]
     Indication: PULMONARY HYPERTENSION
     Dosage: 75 MG (25 MG, 3 IN 1 D), ORAL
     Route: 048
     Dates: start: 20040501
  2. AMIODARONE HCL [Suspect]
     Indication: ILL-DEFINED DISORDER
     Dosage: 200 MG (200 MG,1 IN 1 D),
  3. CLAVULIN (AMOXICILLIN TRIHYDRATE CLAVULANATE POTASSIUM) [Concomitant]

REACTIONS (4)
  - ATRIAL FIBRILLATION [None]
  - PO2 DECREASED [None]
  - PULMONARY HAEMORRHAGE [None]
  - RESPIRATORY FAILURE [None]
